FAERS Safety Report 24640602 (Version 1)
Quarter: 2024Q4

REPORT INFORMATION
  Report Type: Report from Study
  Country: CA (occurrence: CA)
  Receive Date: 20241120
  Receipt Date: 20241120
  Transmission Date: 20250115
  Serious: Yes (Other)
  Sender: BIOCON
  Company Number: CA-BIOCON BIOLOGICS LIMITED-BBL2024008448

PATIENT

DRUGS (1)
  1. HULIO [Suspect]
     Active Substance: ADALIMUMAB-FKJP
     Indication: Rheumatoid arthritis
     Dosage: 40 MG, 1 EVERY 2 WEEKS (SOLUTION)
     Route: 058

REACTIONS (5)
  - Malaise [Unknown]
  - Arthritis bacterial [Unknown]
  - Back pain [Unknown]
  - Hypersensitivity [Unknown]
  - Sinusitis [Unknown]
